FAERS Safety Report 12037375 (Version 1)
Quarter: 2016Q1

REPORT INFORMATION
  Report Type: Spontaneous
  Country: US (occurrence: None)
  Receive Date: 20160204
  Receipt Date: 20160204
  Transmission Date: 20160526
  Serious: Yes (Other)
  Sender: FDA-Public Use
  Company Number: None

PATIENT
  Age: 67 Year
  Sex: Female
  Weight: 64.86 kg

DRUGS (4)
  1. CEFDINIR 300MG LUPIN [Suspect]
     Active Substance: CEFDINIR
     Indication: SINUSITIS
     Route: 048
     Dates: start: 20160122, end: 20160129
  2. FISH OIL [Concomitant]
     Active Substance: FISH OIL
  3. CALCIUM [Concomitant]
     Active Substance: CALCIUM
  4. VITAMIN C [Concomitant]
     Active Substance: ASCORBIC ACID

REACTIONS (9)
  - Asthenia [None]
  - Diarrhoea [None]
  - Flatulence [None]
  - Tremor [None]
  - Pyrexia [None]
  - Chills [None]
  - Gastrointestinal tract mucosal discolouration [None]
  - Mucous stools [None]
  - Gastrointestinal pain [None]

NARRATIVE: CASE EVENT DATE: 20160129
